FAERS Safety Report 10419382 (Version 1)
Quarter: 2014Q3

REPORT INFORMATION
  Report Type: Spontaneous
  Country: NZ (occurrence: NZ)
  Receive Date: 20140829
  Receipt Date: 20140829
  Transmission Date: 20150326
  Serious: Yes (Hospitalization, Other)
  Sender: FDA-Public Use
  Company Number: NZ-ELI_LILLY_AND_COMPANY-NZ201408006871

PATIENT
  Sex: Male

DRUGS (1)
  1. ZYPREXA RELPREVV [Suspect]
     Active Substance: OLANZAPINE PAMOATE
     Indication: PRODUCT USED FOR UNKNOWN INDICATION
     Dosage: 405 MG, 2/W
     Route: 030

REACTIONS (9)
  - Sedation [Unknown]
  - Unresponsive to stimuli [Unknown]
  - Gait disturbance [Unknown]
  - Body temperature increased [Unknown]
  - Confusional state [Unknown]
  - Somnolence [Unknown]
  - Prescribed overdose [Unknown]
  - Dysarthria [Unknown]
  - Fatigue [Unknown]

NARRATIVE: CASE EVENT DATE: 20140819
